FAERS Safety Report 4410431-1 (Version None)
Quarter: 2004Q3

REPORT INFORMATION
  Report Type: 
  Country: None (occurrence: None)
  Receive Date: 20040727
  Receipt Date: 20040715
  Transmission Date: 20050211
  Serious: Yes (Hospitalization)
  Sender: FDA-Public Use
  Company Number: 2004-07-0652

PATIENT
  Sex: Male

DRUGS (1)
  1. VIRAFERONPEG [Suspect]
     Dosage: SUBCUTANEOUS
     Route: 058

REACTIONS (2)
  - MEDICATION ERROR [None]
  - NERVOUS SYSTEM DISORDER [None]
